FAERS Safety Report 8471272-1 (Version None)
Quarter: 2012Q2

REPORT INFORMATION
  Report Type: 
  Country: None (occurrence: None)
  Receive Date: 20120627
  Receipt Date: 20120619
  Transmission Date: 20120825
  Serious: Yes (Hospitalization)
  Sender: FDA-Public Use
  Company Number: US-BAYER-2011-046658

PATIENT
  Age: 29 Year
  Sex: Female

DRUGS (11)
  1. YASMIN [Suspect]
  2. SEROQUEL [Concomitant]
     Dosage: 300 MG, DAILY
  3. ABILIFY [Concomitant]
     Dosage: 2 MG, DAILY
  4. ATIVAN [Concomitant]
  5. LUVOX [Concomitant]
     Dosage: 200 MG, DAILY
  6. LORAZEPAM [Concomitant]
     Dosage: 1 MG, PRN
  7. SERTRALINE HYDROCHLORIDE [Concomitant]
     Dosage: 100 MG, UNK
  8. RISPERIDONE [Concomitant]
     Dosage: 1 MG, UNK
  9. YAZ [Suspect]
     Indication: DEPRESSION
  10. LAMICTAL [Concomitant]
     Dosage: 50 MG, DAILY
  11. IBUPROFEN [Concomitant]
     Dosage: 800 MG, UNK

REACTIONS (4)
  - PAIN [None]
  - PULMONARY EMBOLISM [None]
  - EMOTIONAL DISTRESS [None]
  - INJURY [None]
